FAERS Safety Report 24302194 (Version 1)
Quarter: 2024Q3

REPORT INFORMATION
  Report Type: Spontaneous
  Country: CN (occurrence: CN)
  Receive Date: 20240910
  Receipt Date: 20240910
  Transmission Date: 20241017
  Serious: Yes (Death, Hospitalization, Other)
  Sender: MERCK
  Company Number: CN-009507513-2409CHN002076

PATIENT
  Age: 64 Year
  Sex: Male

DRUGS (4)
  1. PEMBROLIZUMAB [Suspect]
     Active Substance: PEMBROLIZUMAB
     Indication: Hepatocellular carcinoma
     Dosage: 200 MILLIGRAM, Q3W
     Route: 042
     Dates: start: 20230220
  2. LENVATINIB MESYLATE [Concomitant]
     Active Substance: LENVATINIB MESYLATE
     Indication: Hepatocellular carcinoma
     Dosage: 8 MILLIGRAM, QD
     Route: 048
     Dates: start: 20230220
  3. CISPLATIN [Concomitant]
     Active Substance: CISPLATIN
     Indication: Transcatheter arterial chemoembolisation
     Dosage: 20 MG, 2 CYCLES
     Dates: start: 20230129, end: 2023
  4. GEMCITABINE [Concomitant]
     Active Substance: GEMCITABINE
     Indication: Transcatheter arterial chemoembolisation
     Dosage: 2 G, 2 CYCLES
     Dates: start: 20230129, end: 2023

REACTIONS (3)
  - Intestinal pseudo-obstruction [Recovering/Resolving]
  - Peritonitis [Fatal]
  - Product use in unapproved indication [Unknown]

NARRATIVE: CASE EVENT DATE: 20230101
